FAERS Safety Report 7533709 (Version 2)
Quarter: 2012Q4

REPORT INFORMATION
  Report Type: 
  Country: US (occurrence: US)
  Receive Date: 20100809
  Receipt Date: 20121212
  Transmission Date: 20130627
  Serious: Yes (Other)
  Sender: FDA-Public Use
  Company Number: US-PFIZER INC-2010096250

PATIENT
  Age: 75 Year
  Sex: Female
  Weight: 52.15 kg

DRUGS (8)
  1. XALATAN [Suspect]
     Indication: GLAUCOMA
     Dosage: one drop, daily, in each eye at night
     Route: 047
     Dates: start: 20100621
  2. BRIMONIDINE TARTRATE [Suspect]
     Indication: GLAUCOMA
     Dosage: 1 Gtt, 2x/day
     Route: 047
  3. ZOCOR [Concomitant]
     Indication: HIGH CHOLESTEROL
     Dosage: 10 mg, daily
  4. SYNTHROID [Concomitant]
     Dosage: UNK
  5. NEXIUM [Concomitant]
     Indication: GASTROESOPHAGEAL REFLUX DISEASE
     Dosage: UNK, as needed
  6. KLONOPIN [Concomitant]
     Indication: SLEEP PROBLEM
     Dosage: once daily at night
  7. ESGIC [Concomitant]
     Indication: MIGRAINE TYPE HEADACHES
     Dosage: UNK, as needed
  8. TOPROL XL [Concomitant]
     Indication: PALPITATIONS
     Dosage: 25 mg, UNK

REACTIONS (5)
  - Intraocular pressure increased [Unknown]
  - Abscess of eyelid [Not Recovered/Not Resolved]
  - Corneal disorder [Not Recovered/Not Resolved]
  - Eye pruritus [Not Recovered/Not Resolved]
  - Eye pain [Not Recovered/Not Resolved]
